FAERS Safety Report 4275112-6 (Version None)
Quarter: 2004Q1

REPORT INFORMATION
  Report Type: 
  Country: None (occurrence: None)
  Receive Date: 20040116
  Receipt Date: 20040107
  Transmission Date: 20041129
  Serious: Yes (Hospitalization, Other)
  Sender: FDA-Public Use
  Company Number: 2004001560

PATIENT
  Age: 68 Year
  Sex: Male
  Weight: 80 kg

DRUGS (7)
  1. TAHOR (ATORVASTATIN) [Suspect]
     Indication: HYPERCHOLESTEROLAEMIA
     Dosage: 20 MG, ORAL
     Route: 048
     Dates: start: 20010515, end: 20031020
  2. NICORANDIL (NICORANDIL) [Suspect]
     Indication: ILL-DEFINED DISORDER
     Dosage: 10 MG (BID), ORAL
     Route: 048
     Dates: start: 20030402, end: 20031022
  3. GLICLAZIDE (GLICLAZIDE) [Suspect]
     Indication: DIABETES MELLITUS NON-INSULIN-DEPENDENT
     Dosage: 30 MG, (DAILY), ORAL
     Route: 048
     Dates: start: 20020115, end: 20031020
  4. METFORMIN EMBONATE (METFORMIN EMBONATE) [Suspect]
     Indication: DIABETES MELLITUS NON-INSULIN-DEPENDENT
     Dosage: (BID), ORAL
     Route: 048
     Dates: start: 20020115, end: 20031020
  5. URSODEOXYCHOLIC ACID (URSODEOXYCHOLIC ACID) [Concomitant]
  6. ATENOLOL [Concomitant]
  7. ACETYLSALICYLIC ACID SRT [Concomitant]

REACTIONS (8)
  - CHOLANGITIS [None]
  - CHOLECYSTITIS [None]
  - CYTOLYTIC HEPATITIS [None]
  - ESCHERICHIA SEPSIS [None]
  - HEPATIC LESION [None]
  - SERUM FERRITIN INCREASED [None]
  - URETHRAL PAPILLOMA [None]
  - URINARY TRACT INFECTION [None]
